FAERS Safety Report 10020600 (Version 3)
Quarter: 2014Q4

REPORT INFORMATION
  Report Type: Spontaneous
  Country: IT (occurrence: IT)
  Receive Date: 20140319
  Receipt Date: 20141111
  Transmission Date: 20150528
  Serious: Yes (Other)
  Sender: FDA-Public Use
  Company Number: IT-ROCHE-1364336

PATIENT
  Age: 69 Year
  Sex: Female
  Weight: 52 kg

DRUGS (2)
  1. OXALIPLATINO ACCORD [Suspect]
     Active Substance: OXALIPLATIN
     Indication: COLON CANCER STAGE III
     Route: 041
     Dates: start: 20140214, end: 20140214
  2. XELODA [Suspect]
     Active Substance: CAPECITABINE
     Indication: COLON CANCER STAGE III
     Route: 048
     Dates: start: 20140214, end: 20140224

REACTIONS (6)
  - Diarrhoea [Unknown]
  - Asthenia [Recovering/Resolving]
  - Vomiting [Recovering/Resolving]
  - Enteritis [Recovering/Resolving]
  - Hyperpyrexia [Recovering/Resolving]
  - Stomatitis [Unknown]

NARRATIVE: CASE EVENT DATE: 20140224
